FAERS Safety Report 12360957 (Version 2)
Quarter: 2016Q2

REPORT INFORMATION
  Report Type: Spontaneous
  Country: JP (occurrence: JP)
  Receive Date: 20160512
  Receipt Date: 20160531
  Transmission Date: 20160815
  Serious: Yes (Other)
  Sender: FDA-Public Use
  Company Number: JP-PFIZER INC-2016253879

PATIENT
  Age: 70 Year
  Sex: Male

DRUGS (3)
  1. CHAMPIX [Suspect]
     Active Substance: VARENICLINE TARTRATE
     Indication: SMOKING CESSATION THERAPY
     Dosage: UNK
     Route: 048
     Dates: start: 20160216, end: 20160228
  2. CHAMPIX [Suspect]
     Active Substance: VARENICLINE TARTRATE
     Dosage: 1.0 MG, DAILY
     Route: 048
     Dates: start: 20160229, end: 20160306
  3. CHAMPIX [Suspect]
     Active Substance: VARENICLINE TARTRATE
     Dosage: 1.5 MG, DAILY
     Route: 048
     Dates: start: 20160307, end: 20160325

REACTIONS (2)
  - Nausea [Recovering/Resolving]
  - Eye oedema [Recovered/Resolved]

NARRATIVE: CASE EVENT DATE: 20160222
